FAERS Safety Report 6204880-9 (Version None)
Quarter: 2009Q2

REPORT INFORMATION
  Report Type: 
  Country: None (occurrence: None)
  Receive Date: 20090527
  Receipt Date: 20090513
  Transmission Date: 20091009
  Serious: Yes (Hospitalization)
  Sender: FDA-Public Use
  Company Number: NL-GENENTECH-283199

PATIENT
  Sex: Female

DRUGS (4)
  1. BEVACIZUMAB [Suspect]
     Indication: COLORECTAL CANCER
     Dosage: 575 MG, QD
     Route: 042
     Dates: start: 20071213
  2. CAPECITABINE [Suspect]
     Indication: COLORECTAL CANCER
     Dosage: 2000 MG, QD
     Route: 048
     Dates: start: 20071213, end: 20081016
  3. OXALIPLATIN [Suspect]
     Indication: COLORECTAL CANCER
     Dosage: 250 MG, QD
     Route: 042
     Dates: start: 20071213
  4. LOPERAMIDE HCL [Concomitant]
     Indication: DRUG USE FOR UNKNOWN INDICATION

REACTIONS (1)
  - PYREXIA [None]
